FAERS Safety Report 25050303 (Version 1)
Quarter: 2025Q1

REPORT INFORMATION
  Report Type: Spontaneous
  Country: PL (occurrence: PL)
  Receive Date: 20250307
  Receipt Date: 20250307
  Transmission Date: 20250409
  Serious: Yes (Hospitalization, Other)
  Sender: SANDOZ
  Company Number: PL-SUN PHARMACEUTICAL INDUSTRIES LTD-2025RR-496624

PATIENT
  Age: 68 Year
  Sex: Male

DRUGS (3)
  1. ASPIRIN [Suspect]
     Active Substance: ASPIRIN
     Indication: Thrombosis
     Route: 065
  2. CISPLATIN [Suspect]
     Active Substance: CISPLATIN
     Indication: Lung adenocarcinoma
     Route: 065
  3. PEMETREXED [Suspect]
     Active Substance: PEMETREXED
     Indication: Lung adenocarcinoma
     Route: 065

REACTIONS (2)
  - Ischaemic stroke [Recovered/Resolved]
  - Drug ineffective [Recovered/Resolved]
